FAERS Safety Report 6985111-9 (Version None)
Quarter: 2010Q3

REPORT INFORMATION
  Report Type: 
  Country: None (occurrence: None)
  Receive Date: 20100913
  Receipt Date: 20100830
  Transmission Date: 20110219
  Serious: Yes (Death, Hospitalization, Other)
  Sender: FDA-Public Use
  Company Number: 2010AP001873

PATIENT
  Age: 56 Year
  Sex: Male

DRUGS (4)
  1. CITALOPRAM HYDROBROMIDE [Suspect]
     Indication: DEPRESSION
     Dosage: 20 MG;QD
  2. MADOPAR (MADOPAR) [Suspect]
     Indication: PARKINSON'S DISEASE
     Dosage: 62.5 MG; TID, 125 MG; TID
  3. MADOPAR CR (MADOPAR) [Suspect]
     Indication: PARKINSON'S DISEASE
     Dosage: 125 MG;HS
  4. MIRAPEXIN (PRAMIPEXOLE DIHYCHLORIDE) [Suspect]
     Indication: PARKINSON'S DISEASE
     Dates: start: 20090101, end: 20090801

REACTIONS (8)
  - ACUTE PSYCHOSIS [None]
  - AGGRESSION [None]
  - COMPLETED SUICIDE [None]
  - DELUSION [None]
  - DEPRESSION [None]
  - HALLUCINATION, AUDITORY [None]
  - OVERDOSE [None]
  - PARANOIA [None]
